FAERS Safety Report 9286572 (Version 1)
Quarter: 2013Q2

REPORT INFORMATION
  Report Type: Spontaneous
  Country: RO (occurrence: RO)
  Receive Date: 20130513
  Receipt Date: 20130513
  Transmission Date: 20140414
  Serious: Yes (Other)
  Sender: FDA-Public Use
  Company Number: RO-ACTAVIS-2013-07835

PATIENT
  Age: 42 Year
  Sex: Female

DRUGS (8)
  1. VINCRISTINE (UNKNOWN) [Suspect]
     Indication: NON-HODGKIN^S LYMPHOMA STAGE III
     Dosage: UNKNOWN
     Route: 065
     Dates: start: 2011
  2. VINCRISTINE (UNKNOWN) [Suspect]
     Indication: RENAL CELL CARCINOMA
  3. CYCLOPHOSPHAMIDE (UNKNOWN) [Suspect]
     Indication: NON-HODGKIN^S LYMPHOMA STAGE III
     Dosage: UNKNOWN
     Route: 065
     Dates: start: 2011
  4. CYCLOPHOSPHAMIDE (UNKNOWN) [Suspect]
     Indication: RENAL CELL CARCINOMA
  5. PREDNISONE (UNKNOWN) [Suspect]
     Indication: NON-HODGKIN^S LYMPHOMA STAGE III
     Dosage: UNKNOWN
     Route: 065
     Dates: start: 2011
  6. PREDNISONE (UNKNOWN) [Suspect]
     Indication: RENAL CELL CARCINOMA
  7. INTERFERON ALFA-2A [Suspect]
     Indication: NON-HODGKIN^S LYMPHOMA STAGE III
     Dosage: 3 MUI, THREE TIMES A WEEK
     Route: 065
     Dates: start: 2011
  8. INTERFERON ALFA-2A [Suspect]
     Indication: RENAL CELL CARCINOMA

REACTIONS (2)
  - Leukopenia [Recovering/Resolving]
  - Neutropenia [Recovering/Resolving]
